FAERS Safety Report 4877991-8 (Version None)
Quarter: 2005Q4

REPORT INFORMATION
  Report Type: 
  Country: None (occurrence: None)
  Receive Date: 20051206
  Receipt Date: 20050908
  Transmission Date: 20060501
  Serious: No
  Sender: FDA-Public Use
  Company Number: USA0509107557

PATIENT
  Age: 49 Year
  Sex: Male

DRUGS (10)
  1. CYMBALTA [Suspect]
     Indication: DEPRESSION
     Dosage: 60 MG
     Dates: end: 20050830
  2. AMITRIPTYLINE HCL [Concomitant]
  3. DESYREL [Concomitant]
  4. PLENDIL [Concomitant]
  5. SYNTHROID [Concomitant]
  6. LOPRESSOR [Concomitant]
  7. ASPIRIN [Concomitant]
  8. TAGAMET [Concomitant]
  9. ALLEGRA [Concomitant]
  10. METHADONE [Concomitant]

REACTIONS (7)
  - ABNORMAL BEHAVIOUR [None]
  - AGITATION [None]
  - CRYING [None]
  - EMOTIONAL DISORDER [None]
  - ERECTILE DYSFUNCTION [None]
  - FEELING ABNORMAL [None]
  - IRRITABILITY [None]
